FAERS Safety Report 5192675-7 (Version None)
Quarter: 2006Q4

REPORT INFORMATION
  Report Type: 
  Country: None (occurrence: None)
  Receive Date: 20061220
  Receipt Date: 20061120
  Transmission Date: 20070319
  Serious: Yes (Other)
  Sender: FDA-Public Use
  Company Number: 225128

PATIENT
  Age: 80 Year
  Sex: Female

DRUGS (5)
  1. AVASTIN [Suspect]
     Indication: COLORECTAL CANCER METASTATIC
  2. 5-FU (FLUORUORACIL) [Concomitant]
  3. LEUCOVORIN CALCIUM [Concomitant]
  4. OXALIPLATIN [Concomitant]
  5. PAIN MEDICATION (ANALGESIC NOS) [Concomitant]

REACTIONS (2)
  - FALL [None]
  - WRIST FRACTURE [None]
